FAERS Safety Report 7054439-9 (Version None)
Quarter: 2010Q4

REPORT INFORMATION
  Report Type: 
  Country: None (occurrence: None)
  Receive Date: 20101020
  Receipt Date: 20101011
  Transmission Date: 20110411
  Serious: Yes (Other)
  Sender: FDA-Public Use
  Company Number: AU-GILEAD-2010-0032472

PATIENT
  Sex: Female

DRUGS (3)
  1. VIREAD [Suspect]
     Indication: HEPATITIS B
  2. KARVEZIDE [Concomitant]
     Indication: HYPERTENSION
  3. GLICLAZIDE [Concomitant]
     Indication: DIABETES MELLITUS

REACTIONS (3)
  - ALANINE AMINOTRANSFERASE INCREASED [None]
  - HEPATIC FIBROSIS [None]
  - HEPATITIS [None]
